FAERS Safety Report 15367593 (Version 1)
Quarter: 2018Q3

REPORT INFORMATION
  Report Type: Spontaneous
  Country: US (occurrence: US)
  Receive Date: 20180904
  Receipt Date: 20180904
  Transmission Date: 20181010
  Serious: No
  Sender: FDA-Public Use
  Company Number: None

PATIENT
  Age: 74 Year
  Sex: Male

DRUGS (1)
  1. REPATHA [Suspect]
     Active Substance: EVOLOCUMAB
     Dosage: OTHER?12?OCT?2018
     Route: 058

REACTIONS (2)
  - Drug dose omission [None]
  - Product storage error [None]

NARRATIVE: CASE EVENT DATE: 20180820
